FAERS Safety Report 6912801-6 (Version None)
Quarter: 2010Q3

REPORT INFORMATION
  Report Type: 
  Country: None (occurrence: None)
  Receive Date: 20100806
  Receipt Date: 20090108
  Transmission Date: 20110219
  Serious: No
  Sender: FDA-Public Use
  Company Number: US-PFIZER INC-2009154476

PATIENT
  Age: 50 Year
  Sex: Female

DRUGS (3)
  1. DETROL LA [Suspect]
     Route: 048
     Dates: start: 20090108
  2. IBUPROFEN [Suspect]
  3. BENADRYL [Suspect]

REACTIONS (3)
  - DRUG INEFFECTIVE [None]
  - ILL-DEFINED DISORDER [None]
  - SKIN DISORDER [None]
